FAERS Safety Report 20016043 (Version 1)
Quarter: 2021Q4

REPORT INFORMATION
  Report Type: Spontaneous
  Country: US (occurrence: None)
  Receive Date: 20211102
  Receipt Date: 20211102
  Transmission Date: 20220303
  Serious: Yes (Other)
  Sender: FDA-Public Use
  Company Number: None

PATIENT
  Age: 48 Year
  Sex: Female

DRUGS (1)
  1. KYMRIAH [Suspect]
     Active Substance: TISAGENLECLEUCEL
     Indication: Diffuse large B-cell lymphoma
     Dosage: OTHER FREQUENCY : ONCE;?
     Dates: start: 20210908, end: 20210908

REACTIONS (4)
  - Lymphadenopathy [None]
  - Parotid gland enlargement [None]
  - Swelling face [None]
  - Disease progression [None]

NARRATIVE: CASE EVENT DATE: 20210908
